FAERS Safety Report 21004159 (Version 1)
Quarter: 2022Q2

REPORT INFORMATION
  Report Type: Spontaneous
  Country: US (occurrence: US)
  Receive Date: 20220624
  Receipt Date: 20220624
  Transmission Date: 20220721
  Serious: No
  Sender: FDA-Public Use
  Company Number: US-AVEO ONCOLOGY-2022-AVEO-US000088

PATIENT

DRUGS (21)
  1. FOTIVDA [Suspect]
     Active Substance: TIVOZANIB HYDROCHLORIDE
     Indication: Renal cell carcinoma
     Dosage: 0.89 MG DAILY ON DAYS 1-21 EVERY 28 DAYS
     Route: 048
     Dates: start: 20220314
  2. FOTIVDA [Suspect]
     Active Substance: TIVOZANIB HYDROCHLORIDE
     Dosage: 0.89 MG DAILY ON DAYS 1-21 EVERY 28 DAYS
     Route: 048
     Dates: start: 20220412
  3. DEXAMETHASONE [Concomitant]
     Active Substance: DEXAMETHASONE
  4. SENNA [Concomitant]
     Active Substance: SENNA LEAF\SENNOSIDES\SENNOSIDES A AND B
  5. EPIPEN [Concomitant]
     Active Substance: EPINEPHRINE
  6. FERROUS SULFATE [Concomitant]
     Active Substance: FERROUS SULFATE
  7. FOLIC ACID [Concomitant]
     Active Substance: FOLIC ACID
  8. ALBUTEROL\IPRATROPIUM [Concomitant]
     Active Substance: ALBUTEROL\IPRATROPIUM
  9. LEVOTHYROXINE [Concomitant]
     Active Substance: LEVOTHYROXINE
  10. LOMOTIL [Concomitant]
     Active Substance: ATROPINE SULFATE\DIPHENOXYLATE HYDROCHLORIDE
  11. MORPHINE SULFATE [Concomitant]
     Active Substance: MORPHINE SULFATE
  12. OMEPRAZOLE [Concomitant]
     Active Substance: OMEPRAZOLE
  13. PERCOCET [Concomitant]
     Active Substance: ACETAMINOPHEN\OXYCODONE HYDROCHLORIDE
  14. PROAIR HFA [Concomitant]
     Active Substance: ALBUTEROL SULFATE
  15. PROCHLORPERAZINE MALEATE [Concomitant]
     Active Substance: PROCHLORPERAZINE MALEATE
  16. VITAMIN C [Concomitant]
     Active Substance: ASCORBIC ACID
  17. ALBUTEROL [Concomitant]
     Active Substance: ALBUTEROL
  18. DOCUSATE CALCIUM [Concomitant]
     Active Substance: DOCUSATE CALCIUM
  19. EPINEPHRINE [Concomitant]
     Active Substance: EPINEPHRINE
  20. LIDOCAINE [Concomitant]
     Active Substance: LIDOCAINE
  21. ONDANSETRON [Concomitant]
     Active Substance: ONDANSETRON

REACTIONS (10)
  - Fatigue [Unknown]
  - Stomatitis [Recovered/Resolved]
  - Hypertension [Unknown]
  - Thyroiditis [Not Recovered/Not Resolved]
  - Headache [Unknown]
  - Blood glucose increased [Unknown]
  - Face oedema [Recovered/Resolved]
  - Oedema peripheral [Recovered/Resolved]
  - Abdominal discomfort [Recovered/Resolved]
  - Dry skin [Unknown]
